FAERS Safety Report 16934241 (Version 1)
Quarter: 2019Q4

REPORT INFORMATION
  Report Type: Spontaneous
  Country: US (occurrence: US)
  Receive Date: 20191017
  Receipt Date: 20191017
  Transmission Date: 20200122
  Serious: Yes (Other)
  Sender: FDA-Public Use
  Company Number: None

PATIENT
  Sex: Male

DRUGS (14)
  1. HUMIRA [Suspect]
     Active Substance: ADALIMUMAB
     Indication: CROHN^S DISEASE
  2. CLONIDINE 0.2MG/24H WEEKLY PATCH [Concomitant]
  3. FLONASE 50MCG NASAL SPRAY [Concomitant]
  4. K-DUR 10MEQ [Concomitant]
  5. LOPRESSOR 50MG [Concomitant]
  6. VENTOLIN HFA [Concomitant]
     Active Substance: ALBUTEROL SULFATE
  7. NORCO [Concomitant]
     Active Substance: ACETAMINOPHEN\HYDROCODONE BITARTRATE
  8. ANORO ELLIPTA [Concomitant]
     Active Substance: UMECLIDINIUM BROMIDE\VILANTEROL TRIFENATATE
  9. ELIQUIS [Concomitant]
     Active Substance: APIXABAN
  10. PROTONIX [Concomitant]
     Active Substance: PANTOPRAZOLE SODIUM
  11. AMLODIPINE [Concomitant]
     Active Substance: AMLODIPINE BESYLATE
  12. TAMSULOSIN 0.4MG [Concomitant]
     Active Substance: TAMSULOSIN
  13. CETIRIZINE [Concomitant]
     Active Substance: CETIRIZINE HYDROCHLORIDE
  14. FUROSEMIDE 40MG [Concomitant]
     Active Substance: FUROSEMIDE

REACTIONS (1)
  - Oral candidiasis [None]
